FAERS Safety Report 6398897-1 (Version None)
Quarter: 2009Q4

REPORT INFORMATION
  Report Type: 
  Country: None (occurrence: None)
  Receive Date: 20091013
  Receipt Date: 20091008
  Transmission Date: 20100525
  Serious: Yes (Death)
  Sender: FDA-Public Use
  Company Number: PHEH2009US10544

PATIENT
  Sex: Female

DRUGS (5)
  1. CLOZARIL [Suspect]
     Indication: PSYCHOTIC DISORDER
     Dosage: 12.5 MG QHS
     Route: 048
     Dates: start: 20080911
  2. CLOZARIL [Suspect]
     Dosage: 100 MG, QHS
     Route: 048
     Dates: end: 20090303
  3. CARBIDOPA + LEVODOPA [Concomitant]
     Indication: PARKINSON'S DISEASE
     Dosage: UNK
     Dates: start: 20080227
  4. PRAMIPEXOLE [Concomitant]
     Indication: PARKINSON'S DISEASE
     Dosage: UNK
     Dates: start: 20080227
  5. ALPRAZOLAM [Concomitant]
     Indication: INSOMNIA
     Dosage: UNK
     Dates: start: 20080227

REACTIONS (7)
  - DEATH [None]
  - DROOLING [None]
  - DYSPNOEA [None]
  - LIP HAEMORRHAGE [None]
  - MOUTH INJURY [None]
  - TREMOR [None]
  - WEIGHT INCREASED [None]
